FAERS Safety Report 8680236 (Version 6)
Quarter: 2014Q2

REPORT INFORMATION
  Report Type: Spontaneous
  Country: US (occurrence: US)
  Receive Date: 20120724
  Receipt Date: 20130730
  Transmission Date: 20141212
  Serious: Yes (Hospitalization, Disabling, Other)
  Sender: FDA-Public Use
  Company Number: US-009507513-2009SP031151

PATIENT
  Sex: Female
  Weight: 102.4 kg

DRUGS (5)
  1. NUVARING [Suspect]
     Indication: CONTRACEPTION
     Dates: start: 200804, end: 200905
  2. NUVARING [Suspect]
     Indication: MENSTRUATION IRREGULAR
  3. EFFEXOR [Concomitant]
  4. ZYRTEC [Concomitant]
  5. IRON (UNSPECIFIED) [Concomitant]

REACTIONS (14)
  - Hypokalaemia [Unknown]
  - Pulmonary embolism [Unknown]
  - Pulmonary hypertension [Unknown]
  - Aortic valve sclerosis [Unknown]
  - Breast calcifications [Unknown]
  - Palpitations [Not Recovered/Not Resolved]
  - Arrhythmia [Unknown]
  - Arrhythmia supraventricular [Unknown]
  - Pain in extremity [Unknown]
  - Arthralgia [Unknown]
  - Tachycardia [Recovered/Resolved]
  - Skin mass [Unknown]
  - Polycystic ovaries [Unknown]
  - Menstruation irregular [Unknown]
